FAERS Safety Report 6534073-7 (Version None)
Quarter: 2010Q1

REPORT INFORMATION
  Report Type: 
  Country: None (occurrence: None)
  Receive Date: 20100112
  Receipt Date: 20091228
  Transmission Date: 20100710
  Serious: Yes (Hospitalization)
  Sender: FDA-Public Use
  Company Number: PHHY2009JP33492

PATIENT
  Sex: Male

DRUGS (9)
  1. AMN107 AMN+CAP [Suspect]
     Indication: CHRONIC MYELOID LEUKAEMIA
     Dosage: 200 MG/DAY
     Route: 048
     Dates: start: 20090410, end: 20090730
  2. AMN107 AMN+CAP [Suspect]
     Dosage: 200 MG/DAY
     Route: 048
     Dates: start: 20090827
  3. GLEEVEC [Suspect]
     Indication: CHRONIC MYELOID LEUKAEMIA
     Dosage: 200 MG/DAY
     Dates: start: 20040301, end: 20090409
  4. ALOSITOL [Concomitant]
     Indication: CHRONIC MYELOID LEUKAEMIA
     Dosage: 100 MG, UNK
     Route: 048
  5. GASMOTIN [Concomitant]
     Indication: CHRONIC MYELOID LEUKAEMIA
     Dosage: 15 MG, UNK
     Route: 048
  6. METHYCOBAL [Concomitant]
     Indication: CHRONIC MYELOID LEUKAEMIA
     Dosage: 1500 UG, UNK
     Route: 048
  7. LENDORMIN [Concomitant]
     Indication: CHRONIC MYELOID LEUKAEMIA
     Dosage: 0.25 MG, UNK
     Route: 048
  8. ALLOID [Concomitant]
     Indication: CHRONIC MYELOID LEUKAEMIA
     Dosage: 60 UL, UNK
     Route: 048
  9. TOUGHMAC E [Concomitant]
     Indication: CHRONIC MYELOID LEUKAEMIA
     Dosage: 3 DF, UNK
     Route: 048

REACTIONS (3)
  - ATRIAL FIBRILLATION [None]
  - MALAISE [None]
  - OEDEMA [None]
